FAERS Safety Report 20363900 (Version 2)
Quarter: 2022Q1

REPORT INFORMATION
  Report Type: Spontaneous
  Country: CN (occurrence: CN)
  Receive Date: 20220121
  Receipt Date: 20220303
  Transmission Date: 20220424
  Serious: Yes (Other)
  Sender: FDA-Public Use
  Company Number: CN-PFIZER INC-202200048121

PATIENT
  Age: 26 Year
  Sex: Female
  Weight: 85.5 kg

DRUGS (5)
  1. HEMABATE [Suspect]
     Active Substance: CARBOPROST TROMETHAMINE
     Indication: Uterine hypotonus
     Dosage: 250 UG, 2X/DAY
     Route: 015
     Dates: start: 20211207, end: 20211207
  2. TRANEXAMIC ACID [Suspect]
     Active Substance: TRANEXAMIC ACID
     Indication: Postpartum haemorrhage
     Dosage: 100 ML, 1X/DAY
     Route: 041
     Dates: start: 20211207, end: 20211207
  3. CALCIUM GLUCONATE [Suspect]
     Active Substance: CALCIUM GLUCONATE
     Indication: Postpartum haemorrhage
     Dosage: 1 G, 1X/DAY
     Route: 040
     Dates: start: 20211207, end: 20211207
  4. CARBETOCIN [Concomitant]
     Active Substance: CARBETOCIN
     Indication: Uterine hypotonus
     Dosage: 100 UG, 1X/DAY
     Route: 041
     Dates: start: 20211207, end: 20211208
  5. OXYTOCIN [Concomitant]
     Active Substance: OXYTOCIN
     Indication: Uterine hypotonus
     Dosage: 10 IU, 1X/DAY
     Route: 015
     Dates: start: 20211207, end: 20211211

REACTIONS (6)
  - Uterine haemorrhage [Unknown]
  - Haemorrhage [Unknown]
  - Nausea [Recovered/Resolved]
  - Vomiting [Recovered/Resolved]
  - Off label use [Unknown]
  - Drug ineffective [Unknown]

NARRATIVE: CASE EVENT DATE: 20211207
